FAERS Safety Report 8844884 (Version 1)
Quarter: 2012Q4

REPORT INFORMATION
  Report Type: 
  Country: US (occurrence: US)
  Receive Date: 20121017
  Receipt Date: 20121017
  Transmission Date: 20130627
  Serious: No
  Sender: FDA-Public Use
  Company Number: US-009507513-1210USA004818

PATIENT
  Sex: Female

DRUGS (4)
  1. DULERA [Suspect]
     Indication: CHRONIC OBSTRUCTIVE PULMONARY DISEASE
     Dosage: 2 DF, bid
     Route: 055
     Dates: start: 201204
  2. NASONEX [Concomitant]
  3. SPIRIVA [Concomitant]
  4. VENTOLIN (ALBUTEROL) [Concomitant]

REACTIONS (1)
  - Vulvovaginal burning sensation [Not Recovered/Not Resolved]
